FAERS Safety Report 6643355-X (Version None)
Quarter: 2010Q1

REPORT INFORMATION
  Report Type: 
  Country: None (occurrence: None)
  Receive Date: 20100319
  Receipt Date: 20100308
  Transmission Date: 20100710
  Serious: Yes (Other)
  Sender: FDA-Public Use
  Company Number: PHEH2008US04553

PATIENT
  Sex: Male

DRUGS (16)
  1. AREDIA [Suspect]
     Dosage: UNK MG, UNK
     Dates: start: 20020206
  2. ZOMETA [Suspect]
     Dosage: 4 MG, QMO
     Route: 042
     Dates: end: 20060601
  3. THALIDOMIDE [Concomitant]
  4. REVLIMID [Concomitant]
     Dosage: UNK
  5. VALPROIC ACID [Concomitant]
     Indication: SLEEP DISORDER
  6. CALCIUM [Concomitant]
  7. VITAMIN D [Concomitant]
  8. HEPARIN [Concomitant]
  9. METOPROLOL TARTRATE [Concomitant]
  10. PREDNISONE [Concomitant]
  11. MELPHALAN HYDROCHLORIDE [Concomitant]
  12. DECADRON [Concomitant]
  13. CHEMOTHERAPEUTICS NOS [Concomitant]
  14. PROCRIT                            /00909301/ [Concomitant]
  15. NITROGLYCERIN ^DAK^ [Concomitant]
     Route: 060
  16. LENALIDOMIDE [Concomitant]

REACTIONS (40)
  - ANAEMIA [None]
  - ANHEDONIA [None]
  - ANXIETY [None]
  - ARTERIAL THERAPEUTIC PROCEDURE [None]
  - ARTERIOSCLEROSIS [None]
  - ARTHRALGIA [None]
  - BACK PAIN [None]
  - BONE LESION [None]
  - BRONCHITIS [None]
  - CATARACT [None]
  - CATHETERISATION CARDIAC [None]
  - CHEST PAIN [None]
  - CHOLELITHIASIS [None]
  - CHRONIC OBSTRUCTIVE PULMONARY DISEASE [None]
  - CONTUSION [None]
  - CORONARY ANGIOPLASTY [None]
  - DEPRESSION [None]
  - DIVERTICULUM [None]
  - DYSGEUSIA [None]
  - HAEMOPTYSIS [None]
  - HYPERMETROPIA [None]
  - INJURY [None]
  - INTRAOCULAR LENS IMPLANT [None]
  - LEUKOPENIA [None]
  - MUSCLE SPASMS [None]
  - MUSCULOSKELETAL PAIN [None]
  - OSTEONECROSIS [None]
  - OSTEOPOROSIS [None]
  - PAIN [None]
  - PHYSICAL DISABILITY [None]
  - PNEUMONIA PNEUMOCOCCAL [None]
  - STENT PLACEMENT [None]
  - STREPTOCOCCAL BACTERAEMIA [None]
  - SWELLING [None]
  - THROMBOCYTOPENIA [None]
  - TOOTH ABSCESS [None]
  - TOOTH EXTRACTION [None]
  - TOOTH LOSS [None]
  - TOOTHACHE [None]
  - UPPER RESPIRATORY TRACT INFECTION [None]
